FAERS Safety Report 4558664-8 (Version None)
Quarter: 2005Q1

REPORT INFORMATION
  Report Type: 
  Country: None (occurrence: None)
  Receive Date: 20050121
  Receipt Date: 20050121
  Transmission Date: 20050727
  Serious: Yes (Life-Threatening)
  Sender: FDA-Public Use
  Company Number: None

PATIENT
  Age: 6 Month
  Sex: Female
  Weight: 7.4 kg

DRUGS (2)
  1. SEVOFLURANE [Suspect]
     Indication: ANAESTHESIA
     Dosage: INH
     Route: 055
     Dates: start: 20041123
  2. ISOFLURANE [Suspect]
     Indication: ANAESTHESIA
     Dosage: INH
     Route: 055
     Dates: start: 20041123

REACTIONS (5)
  - BODY TEMPERATURE INCREASED [None]
  - HEART RATE INCREASED [None]
  - MUSCLE RIGIDITY [None]
  - RESPIRATORY RATE INCREASED [None]
  - TACHYCARDIA [None]
